FAERS Safety Report 15084767 (Version 1)
Quarter: 2018Q2

REPORT INFORMATION
  Report Type: Spontaneous
  Country: JP (occurrence: JP)
  Receive Date: 20180628
  Receipt Date: 20180628
  Transmission Date: 20180711
  Serious: Yes (Hospitalization)
  Sender: FDA-Public Use
  Company Number: JP-009507513-1806JPN002374J

PATIENT

DRUGS (1)
  1. NU-LOTAN TABLETS 50MG [Suspect]
     Active Substance: LOSARTAN
     Dosage: 50 MG, QD
     Route: 048
     Dates: end: 20180617

REACTIONS (2)
  - Hypotension [Not Recovered/Not Resolved]
  - Adverse event [Unknown]

NARRATIVE: CASE EVENT DATE: 20180617
